FAERS Safety Report 9436905 (Version 3)
Quarter: 2013Q4

REPORT INFORMATION
  Report Type: Spontaneous
  Country: US (occurrence: US)
  Receive Date: 20130802
  Receipt Date: 20131030
  Transmission Date: 20140711
  Serious: No
  Sender: FDA-Public Use
  Company Number: US-PFIZER INC-2013224176

PATIENT
  Sex: 0

DRUGS (3)
  1. LYRICA [Suspect]
     Dosage: UNK
  2. VIAGRA [Suspect]
     Dosage: UNK
  3. CHANTIX [Suspect]
     Dosage: UNK

REACTIONS (3)
  - Feeling abnormal [Unknown]
  - Weight decreased [Unknown]
  - Weight increased [Unknown]
